FAERS Safety Report 16857826 (Version 1)
Quarter: 2019Q3

REPORT INFORMATION
  Report Type: Spontaneous
  Country: US (occurrence: US)
  Receive Date: 20190926
  Receipt Date: 20190926
  Transmission Date: 20191005
  Serious: No
  Sender: FDA-Public Use
  Company Number: US-PFIZER INC-2019408367

PATIENT
  Sex: Male

DRUGS (1)
  1. REVATIO [Suspect]
     Active Substance: SILDENAFIL CITRATE
     Indication: ERECTILE DYSFUNCTION
     Dosage: 60 MG, DAILY [TOOK 3 20MG TABS TOGETHER (60MG)/3 TABLETS DAILY]
     Route: 048

REACTIONS (4)
  - Off label use [Unknown]
  - Cyanopsia [Unknown]
  - Product use in unapproved indication [Unknown]
  - Visual brightness [Unknown]
